FAERS Safety Report 8367172-8 (Version None)
Quarter: 2012Q2

REPORT INFORMATION
  Report Type: 
  Country: None (occurrence: None)
  Receive Date: 20120517
  Receipt Date: 20120501
  Transmission Date: 20120825
  Serious: No
  Sender: FDA-Public Use
  Company Number: US-BAYER-2012-048141

PATIENT
  Age: 67 Year
  Sex: Male
  Weight: 82 kg

DRUGS (8)
  1. NAPROXEN (ALEVE) [Suspect]
     Indication: ARTHRITIS
     Dosage: 2 DF, BID
     Route: 048
     Dates: start: 20120501
  2. CALCIUM CARBONATE [Concomitant]
  3. NAMENDA [Concomitant]
  4. VITAMIN B COMPLEX CAP [Concomitant]
  5. ECHINACEA [Concomitant]
  6. CENTRUM [Concomitant]
  7. ARICEPT [Concomitant]
  8. PROSCAR [Concomitant]

REACTIONS (1)
  - NO ADVERSE EVENT [None]
